FAERS Safety Report 12316944 (Version 1)
Quarter: 2016Q2

REPORT INFORMATION
  Report Type: Spontaneous
  Country: US (occurrence: US)
  Receive Date: 20160429
  Receipt Date: 20160429
  Transmission Date: 20160815
  Serious: No
  Sender: FDA-Public Use
  Company Number: US-GLENMARK PHARMACEUTICALS INC, USA.-2016GMK022486

PATIENT

DRUGS (2)
  1. TELMISARTAN TABLETS [Suspect]
     Active Substance: TELMISARTAN
     Indication: BLOOD PRESSURE MEASUREMENT
     Dosage: 20 MG, QD
     Route: 048
  2. TELMISARTAN TABLETS [Suspect]
     Active Substance: TELMISARTAN
     Dosage: 20 MG, BID
     Route: 048

REACTIONS (2)
  - Drug effect incomplete [Unknown]
  - Blood pressure increased [Not Recovered/Not Resolved]
